FAERS Safety Report 8381753-7 (Version None)
Quarter: 2012Q2

REPORT INFORMATION
  Report Type: 
  Country: None (occurrence: None)
  Receive Date: 20120524
  Receipt Date: 20120516
  Transmission Date: 20120825
  Serious: No
  Sender: FDA-Public Use
  Company Number: US-BIOGENIDEC-2012BI017275

PATIENT
  Sex: Female

DRUGS (2)
  1. AVONEX [Suspect]
     Route: 030
     Dates: start: 20030101
  2. AVONEX [Suspect]
     Indication: MULTIPLE SCLEROSIS
     Route: 030
     Dates: start: 20000322, end: 20030101

REACTIONS (6)
  - DISTURBANCE IN ATTENTION [None]
  - INJECTION SITE ANAESTHESIA [None]
  - FATIGUE [None]
  - INCONTINENCE [None]
  - AMNESIA [None]
  - HAEMORRHAGE [None]
